FAERS Safety Report 14360273 (Version 9)
Quarter: 2019Q2

REPORT INFORMATION
  Report Type: Spontaneous
  Country: DE (occurrence: DE)
  Receive Date: 20180106
  Receipt Date: 20190528
  Transmission Date: 20190711
  Serious: Yes (Life-Threatening, Hospitalization, Other)
  Sender: FDA-Public Use
  Company Number: DE-AUROBINDO-AUR-APL-2017-48331

PATIENT

DRUGS (8)
  1. PREDNISOLONE. [Suspect]
     Active Substance: PREDNISOLONE
     Dosage: 3 MILLIGRAM/KILOGRAM, 2 WEEKS (3 MG/KG, BIW)
     Route: 042
  2. ETORICOXIB FILM COATED TABLET [Suspect]
     Active Substance: ETORICOXIB
     Indication: HYPERURICAEMIA
     Dosage: UNK
     Route: 048
  3. ALLOPURINOL. [Suspect]
     Active Substance: ALLOPURINOL
     Indication: HYPERURICAEMIA
     Dosage: UNK, LONG-TERM THERAPY
     Route: 048
  4. ALLOPURINOL. [Suspect]
     Active Substance: ALLOPURINOL
     Indication: ARTHRALGIA
     Dosage: LONG-TERM THERAPY
     Route: 065
  5. ETORICOXIB FILM COATED TABLET [Suspect]
     Active Substance: ETORICOXIB
     Indication: ARTHRALGIA
  6. IBUPROFEN. [Suspect]
     Active Substance: IBUPROFEN
     Indication: HYPERURICAEMIA
     Dosage: UNK, 1 DAY PRN,  AS NEEDED
     Route: 048
  7. IBUPROFEN. [Suspect]
     Active Substance: IBUPROFEN
     Indication: ARTHRALGIA
     Dosage: UNK
     Route: 065
  8. PREDNISOLONE. [Suspect]
     Active Substance: PREDNISOLONE
     Indication: TOXIC EPIDERMAL NECROLYSIS
     Dosage: 1 MILLIGRAM/KILOGRAM, 2 WEEKS (1MG/KG BW/DIE), DOSE INCREASED TO 3MG/KG BW
     Route: 042

REACTIONS (23)
  - Dehydration [Recovered/Resolved]
  - Conjunctivitis [Recovered/Resolved]
  - Skin hyperpigmentation [Recovered/Resolved]
  - Respiratory fatigue [Recovered/Resolved]
  - Skin exfoliation [Recovered/Resolved]
  - Blister [Recovered/Resolved]
  - Rash generalised [Recovered/Resolved]
  - Coating in mouth [Recovered/Resolved]
  - Prerenal failure [Recovered/Resolved]
  - Lip erosion [Recovered/Resolved]
  - Toxic epidermal necrolysis [Recovered/Resolved]
  - Intensive care unit acquired weakness [Recovered/Resolved]
  - Scab [Recovered/Resolved]
  - Dysphagia [Recovered/Resolved]
  - Pruritus [Recovered/Resolved]
  - Drug ineffective [Unknown]
  - Staphylococcal infection [Recovered/Resolved]
  - Pain [Recovered/Resolved]
  - Oral mucosa erosion [Recovered/Resolved]
  - Renal failure [Recovered/Resolved]
  - Mucosal necrosis [Recovered/Resolved]
  - Enterococcal infection [Recovered/Resolved]
  - Erythema [Recovered/Resolved]
